FAERS Safety Report 12202346 (Version 2)
Quarter: 2016Q2

REPORT INFORMATION
  Report Type: Report from Study
  Country: AR (occurrence: AR)
  Receive Date: 20160322
  Receipt Date: 20160407
  Transmission Date: 20160815
  Serious: Yes (Other)
  Sender: FDA-Public Use
  Company Number: PHHY2016AR037113

PATIENT
  Age: 72 Year
  Sex: Male

DRUGS (1)
  1. EXFORGE [Suspect]
     Active Substance: AMLODIPINE BESYLATE\VALSARTAN
     Indication: BLOOD PRESSURE INCREASED
     Dosage: 1 DF (160MG OF VALSARTAN/10MG OF AMLODIPINE), QD
     Route: 065

REACTIONS (11)
  - Pyrexia [Recovered/Resolved]
  - Viral infection [Unknown]
  - Fall [Recovered/Resolved]
  - Erythema [Recovered/Resolved]
  - Ischaemic stroke [Recovered/Resolved]
  - Erysipelas [Recovered/Resolved]
  - Hypoaesthesia [Recovered/Resolved]
  - Swelling face [Recovered/Resolved]
  - Cardiac fibrillation [Unknown]
  - Malaise [Unknown]
  - Face injury [Recovered/Resolved]

NARRATIVE: CASE EVENT DATE: 2013
